FAERS Safety Report 5522992-X (Version None)
Quarter: 2007Q4

REPORT INFORMATION
  Report Type: 
  Country: None (occurrence: None)
  Receive Date: 20071121
  Receipt Date: 20071116
  Transmission Date: 20080405
  Serious: Yes (Hospitalization)
  Sender: FDA-Public Use
  Company Number: PHRM2007FR02603

PATIENT
  Age: 65 Year
  Sex: Male

DRUGS (9)
  1. MINI-SINTROM [Suspect]
     Route: 048
     Dates: end: 20070625
  2. FENOFIBRATE [Suspect]
     Route: 048
     Dates: end: 20070625
  3. BENAZEPRIL HCL [Suspect]
     Dosage: 1 DF, QD
     Route: 048
     Dates: end: 20070625
  4. MODAMIDE [Suspect]
     Dosage: 5 MG, QD
     Route: 048
     Dates: end: 20070625
  5. ALLOPURINOL [Interacting]
     Dosage: 200 MG, QD
     Route: 048
     Dates: end: 20070625
  6. RABEPRAZOLE SODIUM [Concomitant]
     Dosage: 10 MG, QD
     Route: 048
  7. POTASSIUM CHLORIDE [Concomitant]
     Dosage: 1000 MG, QID
     Route: 048
  8. PLAVIX [Concomitant]
     Dosage: 1 DF, QD
  9. PERSANTINE [Concomitant]
     Dosage: 1 DF, BID

REACTIONS (15)
  - ASPARTATE AMINOTRANSFERASE INCREASED [None]
  - BENIGN PROSTATIC HYPERPLASIA [None]
  - BLADDER DISTENSION [None]
  - BLOOD CREATINE PHOSPHOKINASE INCREASED [None]
  - BLOOD CREATININE INCREASED [None]
  - BLOOD POTASSIUM INCREASED [None]
  - BLOOD UREA INCREASED [None]
  - DIALYSIS [None]
  - DRUG INTERACTION [None]
  - EPISTAXIS [None]
  - INTERNATIONAL NORMALISED RATIO INCREASED [None]
  - MYALGIA [None]
  - OBSTRUCTIVE UROPATHY [None]
  - RENAL FAILURE ACUTE [None]
  - RHABDOMYOLYSIS [None]
